FAERS Safety Report 4993402-6 (Version None)
Quarter: 2006Q2

REPORT INFORMATION
  Report Type: 
  Country: None (occurrence: None)
  Receive Date: 20060504
  Receipt Date: 20060504
  Transmission Date: 20061013
  Serious: Yes (Life-Threatening)
  Sender: FDA-Public Use
  Company Number: None

PATIENT
  Age: 78 Year
  Sex: Male
  Weight: 106 kg

DRUGS (1)
  1. CORDARONE [Suspect]
     Indication: ATRIAL FIBRILLATION
     Dosage: 75 MG ONCE IV
     Route: 042
     Dates: start: 20060216

REACTIONS (7)
  - APNOEA [None]
  - CONVULSION [None]
  - MUSCLE RIGIDITY [None]
  - MUSCULOSKELETAL STIFFNESS [None]
  - PALLOR [None]
  - RESPIRATORY ARREST [None]
  - SKIN DISCOLOURATION [None]
